FAERS Safety Report 9968292 (Version 1)
Quarter: 2014Q1

REPORT INFORMATION
  Report Type: Report from Study
  Country: US (occurrence: US)
  Receive Date: 20140306
  Receipt Date: 20140306
  Transmission Date: 20141002
  Serious: No
  Sender: FDA-Public Use
  Company Number: US-ABBVIE-13P-163-1144565-00

PATIENT
  Age: 65 Year
  Sex: Female

DRUGS (20)
  1. HUMIRA [Suspect]
     Indication: COLITIS ULCERATIVE
     Dates: start: 20130822, end: 20130822
  2. HUMIRA [Suspect]
     Dosage: PARTIAL DOSE
     Dates: start: 20130905
  3. LEVOTHYROXINE [Concomitant]
     Indication: PRODUCT USED FOR UNKNOWN INDICATION
     Dosage: IN MORNING
  4. NEXIUM [Concomitant]
     Indication: PRODUCT USED FOR UNKNOWN INDICATION
     Dosage: IN MORNING
  5. PRISTIQ ER [Concomitant]
     Indication: PRODUCT USED FOR UNKNOWN INDICATION
     Dosage: IN MORNING
  6. ZOCOR [Concomitant]
     Indication: PRODUCT USED FOR UNKNOWN INDICATION
  7. DETROL [Concomitant]
     Indication: PRODUCT USED FOR UNKNOWN INDICATION
  8. COREG [Concomitant]
     Indication: PRODUCT USED FOR UNKNOWN INDICATION
  9. KLOR CON [Concomitant]
     Indication: PRODUCT USED FOR UNKNOWN INDICATION
  10. LITHIUM CARBONATE [Concomitant]
     Indication: PRODUCT USED FOR UNKNOWN INDICATION
  11. FOLIC ACID [Concomitant]
     Indication: PRODUCT USED FOR UNKNOWN INDICATION
  12. COZAAR [Concomitant]
     Indication: PRODUCT USED FOR UNKNOWN INDICATION
  13. DEPAKOTE ER [Concomitant]
     Indication: PRODUCT USED FOR UNKNOWN INDICATION
  14. LIALDA [Concomitant]
     Indication: PRODUCT USED FOR UNKNOWN INDICATION
  15. MULTI-VITAMINS VITAFIT [Concomitant]
     Indication: PRODUCT USED FOR UNKNOWN INDICATION
  16. VITAMIN D [Concomitant]
     Indication: PRODUCT USED FOR UNKNOWN INDICATION
  17. TRAZODONE [Concomitant]
     Indication: PRODUCT USED FOR UNKNOWN INDICATION
     Dosage: 50 MG 1-2 TABS AS NEEDED ONCE AT BEDTIME
  18. SALINE SOLUTION [Concomitant]
     Indication: PRODUCT USED FOR UNKNOWN INDICATION
  19. IPRATROPIUM BROMIDE [Concomitant]
     Indication: PRODUCT USED FOR UNKNOWN INDICATION
     Dosage: DAILY AS REQUIRED
  20. AMOXICILLIN [Concomitant]
     Indication: PRODUCT USED FOR UNKNOWN INDICATION
     Dosage: 500 MG 4 TABS AS NEEDED PRE-DENTAL WORK

REACTIONS (4)
  - Drug administration error [Not Recovered/Not Resolved]
  - Nasal congestion [Unknown]
  - Upper-airway cough syndrome [Unknown]
  - Seasonal allergy [Unknown]
